FAERS Safety Report 11105198 (Version 1)
Quarter: 2015Q2

REPORT INFORMATION
  Report Type: Report from Study
  Country: PT (occurrence: PT)
  Receive Date: 20150511
  Receipt Date: 20150511
  Transmission Date: 20150821
  Serious: Yes (Hospitalization, Other)
  Sender: FDA-Public Use
  Company Number: PHHY2015PT052514

PATIENT
  Age: 48 Year
  Sex: Male

DRUGS (6)
  1. LIORESAL [Concomitant]
     Active Substance: BACLOFEN
     Indication: MUSCLE SPASMS
     Dosage: UNK
     Route: 048
  2. CORTISON [Concomitant]
     Active Substance: CORTISONE ACETATE
     Dosage: UNK UNK, QMO
     Route: 042
  3. FOLICIL [Concomitant]
     Active Substance: FOLIC ACID
     Indication: PRODUCT USED FOR UNKNOWN INDICATION
     Dosage: UNK
     Route: 048
  4. GILENYA [Suspect]
     Active Substance: FINGOLIMOD HYDROCHLORIDE
     Indication: MULTIPLE SCLEROSIS
     Dosage: 0.5 MG, QD
     Route: 048
     Dates: start: 20141211, end: 201504
  5. OMEPRAZOLE. [Concomitant]
     Active Substance: OMEPRAZOLE
     Indication: PROPHYLAXIS
     Route: 048
  6. ESCITALOPRAM [Concomitant]
     Active Substance: ESCITALOPRAM OXALATE
     Indication: DEPRESSION
     Route: 048

REACTIONS (8)
  - Malaise [Recovering/Resolving]
  - Abdominal distension [Recovering/Resolving]
  - Asthenia [Recovering/Resolving]
  - Central nervous system lesion [Not Recovered/Not Resolved]
  - Gamma-glutamyltransferase increased [Recovering/Resolving]
  - Bowel movement irregularity [Recovering/Resolving]
  - Movement disorder [Recovering/Resolving]
  - Chromaturia [Recovering/Resolving]

NARRATIVE: CASE EVENT DATE: 201504
